FAERS Safety Report 24893316 (Version 1)
Quarter: 2025Q1

REPORT INFORMATION
  Report Type: Spontaneous
  Country: US (occurrence: US)
  Receive Date: 20250128
  Receipt Date: 20250128
  Transmission Date: 20250409
  Serious: No
  Sender: CSL BEHRING
  Company Number: US-BEH-2025192832

PATIENT
  Sex: Female

DRUGS (1)
  1. HIZENTRA [Suspect]
     Active Substance: HUMAN IMMUNOGLOBULIN G
     Indication: Chronic inflammatory demyelinating polyradiculoneuropathy
     Route: 065

REACTIONS (7)
  - Condition aggravated [Unknown]
  - Mobility decreased [Unknown]
  - Tremor [Unknown]
  - Muscular weakness [Unknown]
  - Gait disturbance [Unknown]
  - Anxiety [Unknown]
  - Product dose omission issue [Unknown]
